FAERS Safety Report 7505480-0 (Version None)
Quarter: 2011Q2

REPORT INFORMATION
  Report Type: 
  Country: None (occurrence: None)
  Receive Date: 20110518
  Receipt Date: 20110510
  Transmission Date: 20111010
  Serious: Yes (Hospitalization)
  Sender: FDA-Public Use
  Company Number: 2011SP021532

PATIENT
  Age: 54 Year
  Sex: Male

DRUGS (6)
  1. ESTAZOLAM [Suspect]
     Indication: PRODUCT USED FOR UNKNOWN INDICATION
     Dosage: 2 MCG;QD;PO
     Route: 048
     Dates: start: 20100803, end: 20101027
  2. MEROPENEM [Suspect]
     Indication: PRODUCT USED FOR UNKNOWN INDICATION
     Dosage: 1000 MG;QD;
     Dates: end: 20101026
  3. AMOXAPINE [Suspect]
     Indication: PRODUCT USED FOR UNKNOWN INDICATION
     Dosage: 50 MG;QD;PO
     Route: 048
     Dates: start: 20100930, end: 20101027
  4. CLINDAMYCIN HCL [Suspect]
     Indication: PRODUCT USED FOR UNKNOWN INDICATION
     Dosage: 600 MG;ONCE
     Dates: end: 20101024
  5. MIRTAZAPINE [Suspect]
     Indication: DEPRESSION
     Dosage: 15 MG;QD;PO
     Route: 048
     Dates: start: 20100809, end: 20101027
  6. LEVOTHYROXINE SODIUM HYDRATE [Concomitant]

REACTIONS (5)
  - DIALYSIS [None]
  - INFECTION [None]
  - RENAL IMPAIRMENT [None]
  - PYREXIA [None]
  - C-REACTIVE PROTEIN INCREASED [None]
